FAERS Safety Report 5401737-8 (Version None)
Quarter: 2007Q3

REPORT INFORMATION
  Report Type: 
  Country: None (occurrence: None)
  Receive Date: 20070731
  Receipt Date: 20070719
  Transmission Date: 20080115
  Serious: Yes (Other)
  Sender: FDA-Public Use
  Company Number: FR-PFIZER INC-2007060161

PATIENT
  Sex: Female

DRUGS (2)
  1. SALAZOPYRINE [Suspect]
     Indication: ANKYLOSING SPONDYLITIS
     Dosage: DAILY DOSE:2GRAM-FREQ:DAILY
  2. CEBUTID [Suspect]
     Dosage: DAILY DOSE:200MG-FREQ:DAILY

REACTIONS (3)
  - HAEMOGLOBIN DECREASED [None]
  - PAIN IN EXTREMITY [None]
  - RED BLOOD CELL COUNT DECREASED [None]
